FAERS Safety Report 25364556 (Version 2)
Quarter: 2025Q2

REPORT INFORMATION
  Report Type: Spontaneous
  Country: HU (occurrence: HU)
  Receive Date: 20250527
  Receipt Date: 20250630
  Transmission Date: 20250717
  Serious: Yes (Other)
  Sender: PFIZER
  Company Number: HU-ROCHE-10000285119

PATIENT
  Sex: Female

DRUGS (1)
  1. RITUXIMAB [Suspect]
     Active Substance: RITUXIMAB
     Route: 065

REACTIONS (6)
  - Vomiting [Unknown]
  - Migraine [Unknown]
  - Lip swelling [Unknown]
  - Rash [Unknown]
  - Swelling face [Unknown]
  - Asthenia [Unknown]
